FAERS Safety Report 21627842 (Version 1)
Quarter: 2022Q4

REPORT INFORMATION
  Report Type: Spontaneous
  Country: BR (occurrence: BR)
  Receive Date: 20221122
  Receipt Date: 20221122
  Transmission Date: 20230113
  Serious: Yes (Other)
  Sender: FDA-Public Use
  Company Number: BR-TAKEDA-2022TUS086722

PATIENT
  Sex: Female

DRUGS (1)
  1. LISDEXAMFETAMINE DIMESYLATE [Suspect]
     Active Substance: LISDEXAMFETAMINE DIMESYLATE
     Indication: Attention deficit hyperactivity disorder
     Dosage: 1 DOSAGE FORM, QD
     Route: 048

REACTIONS (10)
  - Myocardial infarction [Unknown]
  - Drug ineffective [Unknown]
  - Somnolence [Unknown]
  - Feeding disorder [Unknown]
  - Anxiety [Unknown]
  - Insomnia [Unknown]
  - Headache [Unknown]
  - Memory impairment [Unknown]
  - Obsessive-compulsive disorder [Unknown]
  - Disturbance in attention [Unknown]
